FAERS Safety Report 26088915 (Version 2)
Quarter: 2025Q4

REPORT INFORMATION
  Report Type: Spontaneous
  Country: US (occurrence: US)
  Receive Date: 20251125
  Receipt Date: 20251206
  Transmission Date: 20260118
  Serious: Yes (Hospitalization, Other)
  Sender: ELI LILLY AND COMPANY
  Company Number: US-ELI_LILLY_AND_COMPANY-US202511025270

PATIENT
  Age: 85 Year
  Sex: Female
  Weight: 70.295 kg

DRUGS (14)
  1. DONANEMAB [Suspect]
     Active Substance: DONANEMAB
     Indication: Dementia Alzheimer^s type
     Dosage: 700 MG, MONTHLY (1/M)
     Route: 042
     Dates: start: 20250721, end: 20250816
  2. MEMANTINE [Concomitant]
     Active Substance: MEMANTINE
     Indication: Cerebral amyloid angiopathy
     Dosage: UNK, UNKNOWN
     Route: 065
     Dates: start: 20250630
  3. LEVOTHYROXINE [Concomitant]
     Active Substance: LEVOTHYROXINE
     Indication: Hypothyroidism
     Dosage: UNK, UNKNOWN
     Route: 065
     Dates: start: 20250617
  4. PRAVASTATIN [Concomitant]
     Active Substance: PRAVASTATIN
     Indication: Hyperlipidaemia
     Dosage: UNK, UNKNOWN
     Route: 065
     Dates: start: 20250617
  5. TRAZODONE [Concomitant]
     Active Substance: TRAZODONE HYDROCHLORIDE
     Indication: Insomnia
     Dosage: UNK, UNKNOWN
     Route: 065
     Dates: start: 20250617
  6. VALSARTAN [Concomitant]
     Active Substance: VALSARTAN
     Indication: Hypertension
     Dosage: UNK, UNKNOWN
     Route: 065
     Dates: start: 20250617
  7. ESTRADIOL [Concomitant]
     Active Substance: ESTRADIOL
     Indication: Vaginal infection
     Dosage: UNK, UNKNOWN
     Route: 065
     Dates: start: 20250617
  8. MIRALAX [Concomitant]
     Active Substance: POLYETHYLENE GLYCOL 3350
     Indication: Product used for unknown indication
     Dosage: UNK, UNKNOWN
     Route: 065
     Dates: start: 20231025
  9. LEXAPRO [Concomitant]
     Active Substance: ESCITALOPRAM OXALATE
     Indication: Depression
     Dosage: UNK, UNKNOWN
     Route: 065
     Dates: start: 20230617
  10. LEXAPRO [Concomitant]
     Active Substance: ESCITALOPRAM OXALATE
     Indication: Anxiety
  11. ASPIRIN [Concomitant]
     Active Substance: ASPIRIN
     Indication: Antiplatelet therapy
     Dosage: UNK, UNKNOWN
     Route: 065
  12. ASPIRIN [Concomitant]
     Active Substance: ASPIRIN
     Indication: Cerebral amyloid angiopathy
  13. PLAVIX [Concomitant]
     Active Substance: CLOPIDOGREL BISULFATE
     Indication: Cerebral amyloid angiopathy
     Dosage: UNK, UNKNOWN
     Route: 065
  14. LIPITOR [Concomitant]
     Active Substance: ATORVASTATIN CALCIUM
     Indication: Cerebral amyloid angiopathy
     Dosage: UNK, UNKNOWN
     Route: 065

REACTIONS (8)
  - Cerebellar infarction [Unknown]
  - Lacunar infarction [Unknown]
  - Mixed dementia [Unknown]
  - Ischaemic stroke [Unknown]
  - Cerebral amyloid angiopathy [Unknown]
  - Cerebral infarction [Unknown]
  - Cerebral small vessel ischaemic disease [Unknown]
  - White blood cell count increased [Unknown]

NARRATIVE: CASE EVENT DATE: 20251115
